FAERS Safety Report 7397328-2 (Version None)
Quarter: 2011Q2

REPORT INFORMATION
  Report Type: 
  Country: None (occurrence: None)
  Receive Date: 20110406
  Receipt Date: 20110401
  Transmission Date: 20111010
  Serious: No
  Sender: FDA-Public Use
  Company Number: US-PFIZER INC-2011073355

PATIENT
  Sex: Female
  Weight: 62.585 kg

DRUGS (2)
  1. ZITHROMAX [Suspect]
     Indication: OROPHARYNGEAL PAIN
     Dosage: 250 MG, 1X/DAY
     Route: 048
     Dates: start: 20110330
  2. ZITHROMAX [Suspect]
     Indication: CHEST PAIN

REACTIONS (3)
  - INCORRECT DOSE ADMINISTERED [None]
  - PAIN [None]
  - ABDOMINAL PAIN [None]
